FAERS Safety Report 7898006-3 (Version None)
Quarter: 2011Q4

REPORT INFORMATION
  Report Type: 
  Country: None (occurrence: None)
  Receive Date: 20111107
  Receipt Date: 20111107
  Transmission Date: 20120403
  Serious: Yes (Life-Threatening)
  Sender: FDA-Public Use
  Company Number: None

PATIENT
  Age: 58 Year
  Sex: Male
  Weight: 79.378 kg

DRUGS (2)
  1. CYMBALTA [Suspect]
     Indication: DEPRESSION
     Dosage: 1
     Route: 048
     Dates: start: 20100228, end: 20111104
  2. CYMBALTA [Concomitant]
     Indication: DEPRESSION
     Dosage: 1
     Route: 048
     Dates: start: 20100228, end: 20111104

REACTIONS (9)
  - CHILLS [None]
  - WEIGHT DECREASED [None]
  - VIRAL INFECTION [None]
  - DISABILITY [None]
  - MUSCULAR WEAKNESS [None]
  - ASTHENIA [None]
  - MUSCLE FATIGUE [None]
  - CONTUSION [None]
  - TREMOR [None]
